FAERS Safety Report 6774910-4 (Version None)
Quarter: 2010Q2

REPORT INFORMATION
  Report Type: 
  Country: None (occurrence: None)
  Receive Date: 20100616
  Receipt Date: 20100616
  Transmission Date: 20101027
  Serious: No
  Sender: FDA-Public Use
  Company Number: None

PATIENT
  Sex: Male
  Weight: 74.8435 kg

DRUGS (2)
  1. LEVAQUIN [Suspect]
     Indication: PNEUMONIA
     Dosage: ONE TABLET ONCE PER DAY PO
     Route: 048
     Dates: start: 20100430, end: 20100514
  2. LEVAQUIN [Suspect]
     Indication: SINUSITIS
     Dosage: ONE TABLET ONCE PER DAY PO
     Route: 048
     Dates: start: 20100430, end: 20100514

REACTIONS (5)
  - CONTUSION [None]
  - PNEUMONIA [None]
  - RASH [None]
  - TENDON RUPTURE [None]
  - TENDONITIS [None]
